FAERS Safety Report 20590606 (Version 1)
Quarter: 2022Q1

REPORT INFORMATION
  Report Type: Spontaneous
  Country: US (occurrence: US)
  Receive Date: 20220314
  Receipt Date: 20220314
  Transmission Date: 20220423
  Serious: No
  Sender: FDA-Public Use
  Company Number: US-009507513-2203USA003410

PATIENT
  Age: 45 Year
  Sex: Female

DRUGS (8)
  1. INTRON A [Suspect]
     Active Substance: INTERFERON ALFA-2B
     Indication: Adult T-cell lymphoma/leukaemia
  2. INTRON A [Suspect]
     Active Substance: INTERFERON ALFA-2B
     Indication: Allogenic stem cell transplantation
  3. CYCLOPHOSPHAMIDE\DOXORUBICIN\ETOPOSIDE\PREDNISONE\VINCRISTINE [Concomitant]
     Active Substance: CYCLOPHOSPHAMIDE\DOXORUBICIN\ETOPOSIDE\PREDNISONE\VINCRISTINE
     Indication: Allogenic stem cell transplantation
  4. CYCLOPHOSPHAMIDE\DOXORUBICIN\ETOPOSIDE\PREDNISONE\VINCRISTINE [Concomitant]
     Active Substance: CYCLOPHOSPHAMIDE\DOXORUBICIN\ETOPOSIDE\PREDNISONE\VINCRISTINE
     Indication: Adult T-cell lymphoma/leukaemia
  5. ZIDOVUDINE [Concomitant]
     Active Substance: ZIDOVUDINE
     Indication: Allogenic stem cell transplantation
  6. ZIDOVUDINE [Concomitant]
     Active Substance: ZIDOVUDINE
     Indication: Adult T-cell lymphoma/leukaemia
  7. CYCLOPHOSPHAMIDE;DEXAMETHASONE;DOXORUBICIN;VINCRISTINE SULFATE [Concomitant]
     Indication: Allogenic stem cell transplantation
  8. CYCLOPHOSPHAMIDE;DEXAMETHASONE;DOXORUBICIN;VINCRISTINE SULFATE [Concomitant]
     Indication: Adult T-cell lymphoma/leukaemia

REACTIONS (1)
  - Product use in unapproved indication [Unknown]
